FAERS Safety Report 4881742-0 (Version None)
Quarter: 2006Q1

REPORT INFORMATION
  Report Type: 
  Country: None (occurrence: None)
  Receive Date: 20060116
  Receipt Date: 20051107
  Transmission Date: 20060701
  Serious: Yes (Hospitalization)
  Sender: FDA-Public Use
  Company Number: GR-ROCHE-423670

PATIENT
  Age: 57 Year
  Sex: Female

DRUGS (3)
  1. PEG-INTERFERON A-2A (RO 25-8310) [Suspect]
     Dosage: IN THE EVENING
     Route: 058
     Dates: start: 20051010
  2. RIBAVIRIN [Suspect]
     Route: 048
     Dates: start: 20051004
  3. BLINDED THYMOSIN ALFA 1 [Suspect]
     Dosage: DOSING FREQUENCY REPORTED AS TWICE IN THE MORNING
     Route: 058
     Dates: start: 20051004

REACTIONS (1)
  - GINGIVITIS [None]
